FAERS Safety Report 4477177-5 (Version None)
Quarter: 2004Q4

REPORT INFORMATION
  Report Type: 
  Country: None (occurrence: None)
  Receive Date: 20041018
  Receipt Date: 20040823
  Transmission Date: 20050328
  Serious: Yes (Hospitalization)
  Sender: FDA-Public Use
  Company Number: DE-MERCK-0408DEU00174

PATIENT
  Age: 62 Year
  Sex: Male
  Weight: 106 kg

DRUGS (1)
  1. VIOXX [Suspect]
     Indication: BACK PAIN
     Route: 048
     Dates: start: 20040816, end: 20040821

REACTIONS (5)
  - BLOOD PRESSURE INCREASED [None]
  - DYSPHAGIA [None]
  - FACIAL PALSY [None]
  - HYPERSENSITIVITY [None]
  - VISION BLURRED [None]
